FAERS Safety Report 25276534 (Version 1)
Quarter: 2025Q2

REPORT INFORMATION
  Report Type: Spontaneous
  Country: US (occurrence: US)
  Receive Date: 20250507
  Receipt Date: 20250507
  Transmission Date: 20250717
  Serious: Yes (Other)
  Sender: SANOFI AVENTIS
  Company Number: US-SA-2025SA125091

PATIENT
  Sex: Female

DRUGS (18)
  1. DUPIXENT [Suspect]
     Active Substance: DUPILUMAB
     Indication: Psoriasis
     Dosage: 300 MG, QOW
     Route: 058
  2. ATORVASTATIN [Concomitant]
     Active Substance: ATORVASTATIN
  3. BUPROPION HYDROCHLORIDE [Concomitant]
     Active Substance: BUPROPION HYDROCHLORIDE
  4. CLONAZEPAM [Concomitant]
     Active Substance: CLONAZEPAM
  5. FLUVOXAMINE [Concomitant]
     Active Substance: FLUVOXAMINE
  6. FOLIC ACID [Concomitant]
     Active Substance: FOLIC ACID
  7. HUMALOG [Concomitant]
     Active Substance: INSULIN LISPRO
  8. HYDROCODONE [Concomitant]
     Active Substance: HYDROCODONE
  9. LANTUS [Concomitant]
     Active Substance: INSULIN GLARGINE
  10. LEVOTHYROXINE [Concomitant]
     Active Substance: LEVOTHYROXINE
  11. LITHIUM CARBONATE [Concomitant]
     Active Substance: LITHIUM CARBONATE
  12. MELOXICAM [Concomitant]
     Active Substance: MELOXICAM
  13. METHOTREXATE [Concomitant]
     Active Substance: METHOTREXATE
  14. OMEPRAZOLE [Concomitant]
     Active Substance: OMEPRAZOLE
  15. OZEMPIC [Concomitant]
     Active Substance: SEMAGLUTIDE
  16. PREGABALIN [Concomitant]
     Active Substance: PREGABALIN
  17. TRAMADOL HCL [Concomitant]
     Active Substance: TRAMADOL HYDROCHLORIDE
  18. VRAYLAR [Concomitant]
     Active Substance: CARIPRAZINE

REACTIONS (3)
  - Neuropathy peripheral [Not Recovered/Not Resolved]
  - Pain in extremity [Not Recovered/Not Resolved]
  - Product use in unapproved indication [Unknown]
